FAERS Safety Report 5055958-7 (Version None)
Quarter: 2006Q3

REPORT INFORMATION
  Report Type: 
  Country: None (occurrence: None)
  Receive Date: 20060720
  Receipt Date: 20060710
  Transmission Date: 20061208
  Serious: Yes (Hospitalization)
  Sender: FDA-Public Use
  Company Number: BR-BRISTOL-MYERS SQUIBB COMPANY-13438379

PATIENT
  Age: 55 Year
  Sex: Female

DRUGS (1)
  1. CAPTOPRIL [Suspect]

REACTIONS (2)
  - COUGH [None]
  - PNEUMONIA [None]
